FAERS Safety Report 12917272 (Version 1)
Quarter: 2016Q4

REPORT INFORMATION
  Report Type: Spontaneous
  Country: US (occurrence: US)
  Receive Date: 20161107
  Receipt Date: 20161107
  Transmission Date: 20170207
  Serious: No
  Sender: FDA-Public Use
  Company Number: US-JAZZ-2016-US-017358

PATIENT
  Age: 21 Year
  Sex: Female

DRUGS (8)
  1. CYCLOBENZAPRINE [Concomitant]
     Active Substance: CYCLOBENZAPRINE
  2. XYREM [Suspect]
     Active Substance: SODIUM OXYBATE
     Indication: NARCOLEPSY
     Dosage: 3 G, BID
     Route: 048
     Dates: start: 201609, end: 201609
  3. XYREM [Suspect]
     Active Substance: SODIUM OXYBATE
     Dosage: 4 G, BID
     Route: 048
     Dates: start: 201609, end: 201609
  4. XYREM [Suspect]
     Active Substance: SODIUM OXYBATE
     Dosage: UNKNOWN DOSE
     Route: 048
     Dates: start: 201609
  5. ALYACEN [Concomitant]
  6. TENEX [Concomitant]
     Active Substance: GUANFACINE HYDROCHLORIDE
  7. ATIVAN [Concomitant]
     Active Substance: LORAZEPAM
  8. BENADRYL ALLERGY [Concomitant]
     Active Substance: DIPHENHYDRAMINE HYDROCHLORIDE

REACTIONS (13)
  - Night sweats [Not Recovered/Not Resolved]
  - Incorrect dose administered [Unknown]
  - Motion sickness [Unknown]
  - Body temperature fluctuation [Unknown]
  - Discomfort [Unknown]
  - Drug effect decreased [Unknown]
  - Limb discomfort [Unknown]
  - Product preparation error [Unknown]
  - Muscle fatigue [Not Recovered/Not Resolved]
  - Abdominal discomfort [Unknown]
  - Drug tolerance [Unknown]
  - Unevaluable event [Unknown]
  - Nausea [Not Recovered/Not Resolved]

NARRATIVE: CASE EVENT DATE: 201609
